FAERS Safety Report 9205823 (Version 1)
Quarter: 2013Q2

REPORT INFORMATION
  Report Type: Spontaneous
  Country: US (occurrence: None)
  Receive Date: 20130401
  Receipt Date: 20130401
  Transmission Date: 20140414
  Serious: Yes (Death, Life-Threatening)
  Sender: FDA-Public Use
  Company Number: FK201300970

PATIENT
  Age: 49 Year
  Sex: Female

DRUGS (1)
  1. GANCICLOVIR [Suspect]
     Indication: CYTOMEGALOVIRUS INFECTION
     Dosage: LOT # 6005185, EXPIRED DATE: DEC-2014

REACTIONS (1)
  - Hypotension [None]
